FAERS Safety Report 4684901-5 (Version None)
Quarter: 2005Q2

REPORT INFORMATION
  Report Type: 
  Country: None (occurrence: None)
  Receive Date: 20050608
  Receipt Date: 20050601
  Transmission Date: 20051028
  Serious: Yes (Hospitalization)
  Sender: FDA-Public Use
  Company Number: FR-ABBOTT-05P-056-0302124-00

PATIENT
  Age: 12 Month
  Sex: Female

DRUGS (4)
  1. DEPAKENE [Suspect]
     Indication: OPSOCLONUS MYOCLONUS
     Route: 048
     Dates: start: 20050101
  2. DEPAKENE [Suspect]
     Dates: start: 20040101, end: 20050101
  3. TOPIRAMATE [Concomitant]
     Indication: OPSOCLONUS MYOCLONUS
     Route: 048
     Dates: start: 20040101
  4. VIGABATRIN [Concomitant]
     Indication: OPSOCLONUS MYOCLONUS
     Route: 048
     Dates: start: 20040101

REACTIONS (4)
  - FATIGUE [None]
  - HYPOTONIA [None]
  - MYOCLONIC EPILEPSY [None]
  - VOMITING [None]
